FAERS Safety Report 6716784-3 (Version None)
Quarter: 2010Q2

REPORT INFORMATION
  Report Type: 
  Country: None (occurrence: None)
  Receive Date: 20100506
  Receipt Date: 20100506
  Transmission Date: 20101027
  Serious: Yes (Hospitalization, Other)
  Sender: FDA-Public Use
  Company Number: None

PATIENT
  Age: 32 Year
  Sex: Female

DRUGS (8)
  1. ALLERGY SERUM POLLEN + MOLD [Suspect]
     Indication: ALLERGY PROPHYLAXIS
     Dosage: 0.5ML ONCE SQ
     Route: 058
     Dates: start: 20100222
  2. ORAL CONTRACEPTIVES [Concomitant]
  3. M.V.I. [Concomitant]
  4. GABAPENTIN [Concomitant]
  5. FLUOXETINE [Concomitant]
  6. TRAZODONE HCL [Concomitant]
  7. BUPROPION HCL [Concomitant]
  8. CETIRIZINE HCL [Concomitant]

REACTIONS (3)
  - INJECTION SITE URTICARIA [None]
  - NAUSEA [None]
  - PARAESTHESIA [None]
